FAERS Safety Report 17834964 (Version 1)
Quarter: 2020Q2

REPORT INFORMATION
  Report Type: Spontaneous
  Country: US (occurrence: US)
  Receive Date: 20200528
  Receipt Date: 20200528
  Transmission Date: 20200714
  Serious: Yes (Other)
  Sender: FDA-Public Use
  Company Number: US-MYLANLABS-2020M1052012

PATIENT
  Sex: Female

DRUGS (5)
  1. VORICONAZOLE. [Suspect]
     Active Substance: VORICONAZOLE
     Indication: CANDIDA ENDOPHTHALMITIS
     Dosage: TREATMENT DURATION: INJECTED WITH INTRAVITREAL ..
  2. VANCOMYCIN [Concomitant]
     Active Substance: VANCOMYCIN
     Indication: NECROTISING COLITIS
     Route: 065
  3. METRONIDAZOLE. [Concomitant]
     Active Substance: METRONIDAZOLE
     Indication: NECROTISING COLITIS
     Route: 065
  4. CEFEPIME [Concomitant]
     Active Substance: CEFEPIME HYDROCHLORIDE
     Indication: NECROTISING COLITIS
     Route: 065
  5. AMPHOTERICIN [Concomitant]
     Active Substance: AMPHOTERICIN B
     Indication: CANDIDA ENDOPHTHALMITIS
     Route: 065

REACTIONS (2)
  - Retinopathy of prematurity [Recovered/Resolved]
  - Disease progression [Recovered/Resolved]
